FAERS Safety Report 8070990-7 (Version None)
Quarter: 2012Q1

REPORT INFORMATION
  Report Type: 
  Country: None (occurrence: None)
  Receive Date: 20120125
  Receipt Date: 20120117
  Transmission Date: 20120608
  Serious: Yes (Hospitalization)
  Sender: FDA-Public Use
  Company Number: DE-ABBOTT-12P-062-0893984-00

PATIENT
  Sex: Female
  Weight: 72 kg

DRUGS (5)
  1. DIPYRONE TAB [Concomitant]
     Indication: PSORIATIC ARTHROPATHY
     Route: 048
  2. VOLTAREN [Concomitant]
     Indication: PSORIATIC ARTHROPATHY
  3. ARAVA [Concomitant]
     Indication: PSORIATIC ARTHROPATHY
     Route: 048
     Dates: start: 20090101, end: 20120112
  4. TRAMADOL HCL [Concomitant]
     Indication: PSORIATIC ARTHROPATHY
  5. HUMIRA [Suspect]
     Indication: PSORIATIC ARTHROPATHY
     Route: 058
     Dates: start: 20090713

REACTIONS (1)
  - DEPRESSION [None]
